FAERS Safety Report 9785695 (Version 3)
Quarter: 2014Q1

REPORT INFORMATION
  Report Type: Spontaneous
  Country: US (occurrence: US)
  Receive Date: 20131227
  Receipt Date: 20140224
  Transmission Date: 20141002
  Serious: Yes (Hospitalization)
  Sender: FDA-Public Use
  Company Number: US-BAYER-2013-156389

PATIENT
  Age: 22 Year
  Sex: Female
  Weight: 90.7 kg

DRUGS (2)
  1. MIRENA [Suspect]
     Indication: CONTRACEPTION
     Dosage: 20 MCG/24HR, CONT
     Route: 015
     Dates: start: 20081124, end: 20090306
  2. FLAGYL [Concomitant]
     Indication: BACTERIAL VAGINOSIS
     Dosage: UNK
     Dates: start: 20090220

REACTIONS (13)
  - Uterine perforation [None]
  - Ovarian cyst [Recovered/Resolved]
  - Pelvic pain [None]
  - Vaginal discharge [None]
  - Bacterial vaginosis [None]
  - Device difficult to use [None]
  - Injury [None]
  - Emotional distress [None]
  - Procedural pain [None]
  - Menorrhagia [Recovered/Resolved]
  - Abdominal pain [None]
  - Scar [None]
  - Device issue [None]
